FAERS Safety Report 8134405-2 (Version None)
Quarter: 2012Q1

REPORT INFORMATION
  Report Type: 
  Country: None (occurrence: None)
  Receive Date: 20120209
  Receipt Date: 20120125
  Transmission Date: 20120608
  Serious: Yes (Hospitalization, Other)
  Sender: FDA-Public Use
  Company Number: AUR-APL-2012-00841

PATIENT
  Sex: Female

DRUGS (1)
  1. VALACYCLOVIR [Suspect]
     Indication: HERPES ZOSTER
     Dosage: 3 DOSAGE FORMS (1 DOSAGE FORMS, 3 IN 1 D)

REACTIONS (5)
  - IRRITABILITY [None]
  - STRESS [None]
  - BLOOD PRESSURE INCREASED [None]
  - EYE DISORDER [None]
  - BLOOD PRESSURE DIASTOLIC INCREASED [None]
